FAERS Safety Report 5079173-6 (Version None)
Quarter: 2006Q3

REPORT INFORMATION
  Report Type: 
  Country: None (occurrence: None)
  Receive Date: 20060814
  Receipt Date: 20060802
  Transmission Date: 20061208
  Serious: Yes (Hospitalization, Other)
  Sender: FDA-Public Use
  Company Number: JP-JPN-A200602931

PATIENT
  Age: 68 Year
  Sex: Male
  Weight: 54 kg

DRUGS (5)
  1. MODACIN [Suspect]
     Indication: PNEUMONIA
     Route: 042
     Dates: start: 20060731, end: 20060802
  2. DIAMOX [Concomitant]
     Dosage: 250MG TWICE PER DAY
     Route: 048
  3. EUGLUCON [Concomitant]
     Dosage: 1.25MG TWICE PER DAY
     Route: 048
  4. SELBEX [Concomitant]
     Dosage: 50MG THREE TIMES PER DAY
     Route: 048
  5. THEOLONG [Concomitant]
     Dosage: 200MG TWICE PER DAY
     Route: 048

REACTIONS (4)
  - HYPERCAPNIA [None]
  - HYPERHIDROSIS [None]
  - URINARY INCONTINENCE [None]
  - WHEEZING [None]
